FAERS Safety Report 18961423 (Version 1)
Quarter: 2021Q1

REPORT INFORMATION
  Report Type: Spontaneous
  Country: US (occurrence: US)
  Receive Date: 20210303
  Receipt Date: 20210303
  Transmission Date: 20210420
  Serious: Yes (Other)
  Sender: FDA-Public Use
  Company Number: US-BIOCODEX SA-2021000092

PATIENT

DRUGS (3)
  1. ONFI [Concomitant]
     Active Substance: CLOBAZAM
     Indication: PRODUCT USED FOR UNKNOWN INDICATION
  2. FENFLURAMINE [Concomitant]
     Active Substance: FENFLURAMINE
     Indication: PRODUCT USED FOR UNKNOWN INDICATION
  3. DIACOMIT [Suspect]
     Active Substance: STIRIPENTOL
     Indication: IDIOPATHIC GENERALISED EPILEPSY
     Dosage: 1.5 PACKET TWICE DAILY
     Route: 048
     Dates: start: 20201214

REACTIONS (3)
  - Product use in unapproved indication [Unknown]
  - Seizure [Unknown]
  - Behaviour disorder [Unknown]
